FAERS Safety Report 14236131 (Version 1)
Quarter: 2017Q4

REPORT INFORMATION
  Report Type: Spontaneous
  Country: IT (occurrence: IT)
  Receive Date: 20171129
  Receipt Date: 20171129
  Transmission Date: 20180321
  Serious: Yes (Other)
  Sender: FDA-Public Use
  Company Number: IT-BAUSCH-BL-2017-032436

PATIENT
  Age: 1 Year
  Sex: Male

DRUGS (4)
  1. TACHIPIRINA [Concomitant]
     Active Substance: ACETAMINOPHEN
     Indication: FEBRILE CONVULSION
     Route: 054
     Dates: start: 20131217, end: 20131220
  2. AUGMENTIN [Suspect]
     Active Substance: AMOXICILLIN\CLAVULANATE POTASSIUM
     Indication: INFECTION
     Route: 048
     Dates: start: 20131217, end: 20131225
  3. DIAZEPAM. [Suspect]
     Active Substance: DIAZEPAM
     Indication: FEBRILE CONVULSION
     Dosage: IN TOTAL
     Route: 054
     Dates: start: 20131217, end: 20131217
  4. BENTELAN [Suspect]
     Active Substance: BETAMETHASONE SODIUM PHOSPHATE
     Indication: INFLAMMATION
     Route: 048
     Dates: start: 20131217, end: 20131220

REACTIONS (2)
  - Faecal vomiting [Recovered/Resolved with Sequelae]
  - Diarrhoea [Recovered/Resolved with Sequelae]

NARRATIVE: CASE EVENT DATE: 20131225
